FAERS Safety Report 5716139-4 (Version None)
Quarter: 2008Q2

REPORT INFORMATION
  Report Type: 
  Country: None (occurrence: None)
  Receive Date: 20080418
  Receipt Date: 20071219
  Transmission Date: 20081010
  Serious: Yes (Other)
  Sender: FDA-Public Use
  Company Number: US-JNJFOC-20071205532

PATIENT

DRUGS (1)
  1. ARESTIN [Suspect]
     Indication: DRUG USE FOR UNKNOWN INDICATION
     Dosage: , 1 IN , DENTAL
     Route: 004
     Dates: start: 20070101, end: 20070101

REACTIONS (1)
  - TOOTH ABSCESS [None]
